FAERS Safety Report 13718268 (Version 2)
Quarter: 2017Q3

REPORT INFORMATION
  Report Type: Spontaneous
  Country: FR (occurrence: FR)
  Receive Date: 20170705
  Receipt Date: 20170712
  Transmission Date: 20171127
  Serious: Yes (Other)
  Sender: FDA-Public Use
  Company Number: FR-PFIZER INC-2017288358

PATIENT
  Age: 25 Year
  Sex: Female

DRUGS (2)
  1. ADRIAMYCIN [Concomitant]
     Active Substance: DOXORUBICIN HYDROCHLORIDE
     Dosage: UNK, CYCLIC
  2. GEMZAR [Suspect]
     Active Substance: GEMCITABINE HYDROCHLORIDE
     Indication: LIPOSARCOMA
     Dosage: UNK, CYCLIC (FIFTH TREATMENT CYCLE) (CUMULATIVE DOSE 13,440 MG)

REACTIONS (1)
  - Thrombotic microangiopathy [Recovered/Resolved]
